FAERS Safety Report 14247356 (Version 1)
Quarter: 2017Q4

REPORT INFORMATION
  Report Type: Spontaneous
  Country: US (occurrence: None)
  Receive Date: 20171201
  Receipt Date: 20171201
  Transmission Date: 20180321
  Serious: Yes (Life-Threatening)
  Sender: FDA-Public Use
  Company Number: None

PATIENT
  Age: 4 Year
  Sex: Female
  Weight: 14.06 kg

DRUGS (2)
  1. VIGABATRIN POWDER PACKET 500MG [Suspect]
     Active Substance: VIGABATRIN
     Indication: PARTIAL SEIZURES
     Route: 048
     Dates: start: 201708, end: 201712
  2. VIGABATRIN POWDER PACKET 500MG [Suspect]
     Active Substance: VIGABATRIN
     Indication: INFANTILE SPASMS
     Route: 048
     Dates: start: 201708, end: 201712

REACTIONS (1)
  - Seizure [None]

NARRATIVE: CASE EVENT DATE: 20171130
